FAERS Safety Report 11734310 (Version 1)
Quarter: 2015Q4

REPORT INFORMATION
  Report Type: Report from Study
  Country: US (occurrence: US)
  Receive Date: 20151113
  Receipt Date: 20151113
  Transmission Date: 20160304
  Serious: Yes (Hospitalization)
  Sender: FDA-Public Use
  Company Number: US-BIOGENIDEC-2015BI149687

PATIENT
  Age: 78 Year
  Sex: Female

DRUGS (6)
  1. AVONEX [Suspect]
     Active Substance: INTERFERON BETA-1A
     Indication: MULTIPLE SCLEROSIS
     Route: 030
     Dates: start: 20070313
  2. QUINAPRIL [Concomitant]
     Active Substance: QUINAPRIL\QUINAPRIL HYDROCHLORIDE
  3. CRANBERRY. [Concomitant]
     Active Substance: CRANBERRY
  4. TYLENOL [Concomitant]
     Active Substance: ACETAMINOPHEN
  5. LIPITOR [Concomitant]
     Active Substance: ATORVASTATIN CALCIUM
  6. AMITRIPLTYLINE HCL [Concomitant]

REACTIONS (3)
  - Gastrointestinal ulcer haemorrhage [Not Recovered/Not Resolved]
  - General symptom [Unknown]
  - Hypotension [Unknown]

NARRATIVE: CASE EVENT DATE: 20151028
